FAERS Safety Report 4929028-X (Version None)
Quarter: 2006Q1

REPORT INFORMATION
  Report Type: 
  Country: None (occurrence: None)
  Receive Date: 20060228
  Receipt Date: 20060228
  Transmission Date: 20060701
  Serious: Yes (Other)
  Sender: FDA-Public Use
  Company Number: None

PATIENT
  Age: 51 Year
  Sex: Male
  Weight: 74.8435 kg

DRUGS (1)
  1. LIPITOR [Suspect]
     Indication: BLOOD CHOLESTEROL INCREASED
     Dosage: 20 MG   1 PER DAY  PO
     Route: 048
     Dates: start: 19990101, end: 20060223

REACTIONS (4)
  - INSOMNIA [None]
  - MYALGIA [None]
  - PAIN IN EXTREMITY [None]
  - SHOULDER PAIN [None]
